FAERS Safety Report 4536356-9 (Version None)
Quarter: 2004Q4

REPORT INFORMATION
  Report Type: 
  Country: None (occurrence: None)
  Receive Date: 20041220
  Receipt Date: 20041206
  Transmission Date: 20050328
  Serious: Yes (Other)
  Sender: FDA-Public Use
  Company Number: HQWYE490017NOV04

PATIENT
  Age: 42 Year
  Sex: Male

DRUGS (1)
  1. ADVIL [Suspect]
     Indication: HEADACHE
     Dosage: 2 CAPSULES, ORAL
     Route: 048
     Dates: start: 20041113, end: 20041113

REACTIONS (11)
  - BLOOD PRESSURE INCREASED [None]
  - CHEST DISCOMFORT [None]
  - DYSPHAGIA [None]
  - HEART RATE INCREASED [None]
  - HYPERSENSITIVITY [None]
  - HYPOAESTHESIA ORAL [None]
  - OROPHARYNGEAL SWELLING [None]
  - PHARYNGEAL HYPOAESTHESIA [None]
  - SKIN INFLAMMATION [None]
  - SWELLING FACE [None]
  - THROAT TIGHTNESS [None]
